FAERS Safety Report 13192265 (Version 1)
Quarter: 2017Q1

REPORT INFORMATION
  Report Type: Spontaneous
  Country: US (occurrence: US)
  Receive Date: 20170206
  Receipt Date: 20170206
  Transmission Date: 20170428
  Serious: Yes (Death)
  Sender: FDA-Public Use
  Company Number: None

PATIENT
  Age: 77 Year
  Sex: Female

DRUGS (11)
  1. LATANOPROST. [Concomitant]
     Active Substance: LATANOPROST
  2. SILDENAFIL. [Concomitant]
     Active Substance: SILDENAFIL
  3. IBANDRONATE [Concomitant]
     Active Substance: IBANDRONATE SODIUM
  4. OPRATROPIUM [Concomitant]
  5. OPSUMIT [Suspect]
     Active Substance: MACITENTAN
     Indication: PULMONARY EMBOLISM
     Route: 048
     Dates: start: 201608, end: 201612
  6. LEVOTHYROXINE. [Concomitant]
     Active Substance: LEVOTHYROXINE
  7. DIGOXIN. [Concomitant]
     Active Substance: DIGOXIN
  8. METOPROLOL TARTRATE. [Concomitant]
     Active Substance: METOPROLOL TARTRATE
  9. SIMVASTATIN. [Concomitant]
     Active Substance: SIMVASTATIN
  10. CITALOPRAM [Concomitant]
     Active Substance: CITALOPRAM HYDROBROMIDE
  11. SPIRONOLACTONE. [Concomitant]
     Active Substance: SPIRONOLACTONE

REACTIONS (4)
  - International normalised ratio increased [None]
  - Rectal haemorrhage [None]
  - Haemorrhoidal haemorrhage [None]
  - Asthenia [None]

NARRATIVE: CASE EVENT DATE: 20161205
